FAERS Safety Report 16211214 (Version 1)
Quarter: 2019Q2

REPORT INFORMATION
  Report Type: Spontaneous
  Country: US (occurrence: US)
  Receive Date: 20190418
  Receipt Date: 20190418
  Transmission Date: 20190711
  Serious: Yes (Life-Threatening, Hospitalization, Other)
  Sender: FDA-Public Use
  Company Number: US-CIPLA LTD.-2019US02010

PATIENT

DRUGS (1)
  1. LEVOFLOXACIN. [Suspect]
     Active Substance: LEVOFLOXACIN
     Indication: PRODUCT USED FOR UNKNOWN INDICATION
     Dosage: 1 DOSAGE FORM, IN TOTAL (TRIED TO SWALLOW PILL)
     Route: 048

REACTIONS (6)
  - Respiratory failure [Recovered/Resolved]
  - Atelectasis [Unknown]
  - Pneumonitis [Unknown]
  - Cough [Recovered/Resolved]
  - Foreign body aspiration [Recovered/Resolved]
  - Bronchial obstruction [Recovered/Resolved]
